FAERS Safety Report 11086324 (Version 2)
Quarter: 2015Q3

REPORT INFORMATION
  Report Type: Spontaneous
  Country: JP (occurrence: JP)
  Receive Date: 20150504
  Receipt Date: 20150907
  Transmission Date: 20151125
  Serious: Yes (Death, Hospitalization)
  Sender: FDA-Public Use
  Company Number: JP-ROCHE-1571820

PATIENT
  Age: 66 Year
  Sex: Male
  Weight: 62 kg

DRUGS (5)
  1. AVASTIN [Suspect]
     Active Substance: BEVACIZUMAB
     Indication: LUNG ADENOCARCINOMA
     Route: 041
     Dates: start: 20141008, end: 20150226
  2. AVASTIN [Suspect]
     Active Substance: BEVACIZUMAB
     Route: 041
     Dates: start: 20150402, end: 20150420
  3. ALIMTA [Suspect]
     Active Substance: PEMETREXED DISODIUM
     Indication: LUNG ADENOCARCINOMA
     Route: 041
     Dates: start: 20141008, end: 20150226
  4. ALIMTA [Suspect]
     Active Substance: PEMETREXED DISODIUM
     Dosage: COMPLETED TREATMENT CYCLE NUMBER 6
     Route: 041
     Dates: start: 20150402, end: 20150420
  5. PARAPLATIN [Concomitant]
     Active Substance: CARBOPLATIN
     Indication: LUNG ADENOCARCINOMA
     Dosage: COMPLETED TREATMENT CYCLE NUMBER: 6
     Route: 041
     Dates: start: 20141008, end: 20150226

REACTIONS (3)
  - Interstitial lung disease [Not Recovered/Not Resolved]
  - Disseminated intravascular coagulation [Fatal]
  - Cerebral infarction [Fatal]

NARRATIVE: CASE EVENT DATE: 20150420
